FAERS Safety Report 9318911 (Version 2)
Quarter: 2013Q2

REPORT INFORMATION
  Report Type: Spontaneous
  Country: CN (occurrence: CN)
  Receive Date: 20130530
  Receipt Date: 20130605
  Transmission Date: 20140414
  Serious: Yes (Hospitalization, Other)
  Sender: FDA-Public Use
  Company Number: PHHY2013CN037283

PATIENT
  Age: 69 Year
  Sex: Male

DRUGS (9)
  1. DIOVAN [Suspect]
     Indication: HYPERTENSION
     Dosage: 80 MG, DAILY
     Route: 048
     Dates: start: 201205
  2. DIOVAN [Suspect]
     Dosage: 160 MG, DAILY
  3. DIOVAN [Suspect]
     Dosage: ONE CAPSULE OF DIOVAN BEFORE NOON AND TOOK ANOTHER CAPSULE OF DIOVAN AT 2 PM ON SAME DAY
     Dates: start: 20130412
  4. BETALOC [Concomitant]
     Indication: ARRHYTHMIA
     Route: 048
  5. CAPOTEN [Concomitant]
     Indication: HYPERTENSION
     Route: 048
  6. AMIODARONE [Concomitant]
     Indication: ATRIAL FIBRILLATION
     Dosage: 3 DF, DAILY
     Route: 048
     Dates: start: 2010
  7. AMIODARONE [Concomitant]
     Dosage: 2 DF, DAILY
     Dates: start: 2010
  8. AMIODARONE [Concomitant]
     Dosage: 1 DF, DAILY
     Dates: start: 2010
  9. AMIODARONE [Concomitant]
     Dosage: UNK

REACTIONS (7)
  - Nasopharyngitis [Recovered/Resolved]
  - Atrial fibrillation [Recovered/Resolved]
  - Heart rate increased [Recovered/Resolved]
  - White blood cell count decreased [Recovered/Resolved]
  - Cough [Recovered/Resolved]
  - Drug ineffective [Recovered/Resolved]
  - Blood pressure inadequately controlled [Recovered/Resolved]
